FAERS Safety Report 5742466-0 (Version None)
Quarter: 2008Q2

REPORT INFORMATION
  Report Type: 
  Country: None (occurrence: None)
  Receive Date: 20080515
  Receipt Date: 20080501
  Transmission Date: 20081010
  Serious: Yes (Hospitalization)
  Sender: FDA-Public Use
  Company Number: ZEV-08-0184

PATIENT
  Age: 74 Year
  Sex: Male

DRUGS (2)
  1. ZEVALIN [Suspect]
     Indication: DIFFUSE LARGE B-CELL LYMPHOMA
     Dosage: 1180 MBQ, X1, IVI
     Dates: start: 20070920, end: 20070920
  2. RITUXAN [Suspect]
     Indication: DIFFUSE LARGE B-CELL LYMPHOMA
     Dosage: 490 MG (X2), IVI
     Dates: start: 20070913, end: 20070920

REACTIONS (5)
  - ARTERIOSCLEROSIS CORONARY ARTERY [None]
  - CATHETER THROMBOSIS [None]
  - CORONARY ARTERY STENOSIS [None]
  - FEBRILE NEUTROPENIA [None]
  - MYOCARDIAL INFARCTION [None]
